FAERS Safety Report 24013544 (Version 2)
Quarter: 2024Q3

REPORT INFORMATION
  Report Type: Report from Study
  Country: US (occurrence: US)
  Receive Date: 20240626
  Receipt Date: 20240704
  Transmission Date: 20241017
  Serious: Yes (Other)
  Sender: ROCHE
  Company Number: US-ROCHE-3224109

PATIENT
  Age: 51 Year
  Sex: Male
  Weight: 75.3 kg

DRUGS (8)
  1. OCREVUS [Suspect]
     Active Substance: OCRELIZUMAB
     Indication: Relapsing multiple sclerosis
     Dosage: DAY 1-300MG + DAY15-300MG THEN INFUSE 600MG INTRAVENOUSLY EVERY 6 MONTH(S), DATE OF TREATMENT: 18/NO
     Route: 042
  2. OCREVUS [Suspect]
     Active Substance: OCRELIZUMAB
     Indication: Primary progressive multiple sclerosis
  3. OCREVUS [Suspect]
     Active Substance: OCRELIZUMAB
     Indication: Disability
  4. OCREVUS [Suspect]
     Active Substance: OCRELIZUMAB
     Indication: Progressive multiple sclerosis
  5. ALPHA LIPOIC ACID [Concomitant]
     Active Substance: .ALPHA.-LIPOIC ACID
  6. LAMISIL [Concomitant]
     Active Substance: TERBINAFINE HYDROCHLORIDE
  7. DESYREL [Concomitant]
     Active Substance: TRAZODONE HYDROCHLORIDE
  8. KENALOG [Concomitant]
     Active Substance: TRIAMCINOLONE ACETONIDE

REACTIONS (6)
  - Memory impairment [Unknown]
  - Multiple sclerosis [Unknown]
  - Insomnia [Unknown]
  - Sleep disorder [Unknown]
  - COVID-19 [Unknown]
  - Fall [Unknown]
